FAERS Safety Report 13878425 (Version 1)
Quarter: 2017Q3

REPORT INFORMATION
  Report Type: Spontaneous
  Country: US (occurrence: US)
  Receive Date: 20170817
  Receipt Date: 20170817
  Transmission Date: 20171127
  Serious: Yes (Hospitalization, Other)
  Sender: FDA-Public Use
  Company Number: US-ROCHE-1029365

PATIENT
  Sex: Male

DRUGS (2)
  1. PEGASYS [Suspect]
     Active Substance: PEGINTERFERON ALFA-2A
     Indication: CHRONIC HEPATITIS C
     Route: 058
     Dates: start: 20110506
  2. COPEGUS [Suspect]
     Active Substance: RIBAVIRIN
     Indication: CHRONIC HEPATITIS C
     Route: 048
     Dates: start: 20110506

REACTIONS (8)
  - Hypersomnia [Unknown]
  - Suicidal ideation [Unknown]
  - Nausea [Unknown]
  - Mania [Unknown]
  - Depression [Unknown]
  - Viral upper respiratory tract infection [Unknown]
  - Influenza like illness [Unknown]
  - Asthenia [Unknown]
